FAERS Safety Report 17464205 (Version 1)
Quarter: 2020Q1

REPORT INFORMATION
  Report Type: Spontaneous
  Country: DE (occurrence: DE)
  Receive Date: 20200226
  Receipt Date: 20200226
  Transmission Date: 20200409
  Serious: Yes (Other)
  Sender: FDA-Public Use
  Company Number: DE-BAYER-2020-029263

PATIENT
  Age: 24 Year
  Sex: Male
  Weight: 96 kg

DRUGS (1)
  1. GADOVIST [Suspect]
     Active Substance: GADOBUTROL
     Dosage: UNK
     Dates: start: 20040301

REACTIONS (7)
  - Paralysis [None]
  - Myalgia [None]
  - Influenza like illness [None]
  - Fatigue [None]
  - Impaired work ability [None]
  - Hypoaesthesia [None]
  - Quality of life decreased [None]

NARRATIVE: CASE EVENT DATE: 20190525
